FAERS Safety Report 6569758-X (Version None)
Quarter: 2010Q1

REPORT INFORMATION
  Report Type: 
  Country: None (occurrence: None)
  Receive Date: 20100204
  Receipt Date: 20100128
  Transmission Date: 20100710
  Serious: Yes (Hospitalization)
  Sender: FDA-Public Use
  Company Number: FR-KINGPHARMUSA00001-K201000107

PATIENT
  Age: 91 Year
  Sex: Male

DRUGS (8)
  1. ALTACE [Suspect]
     Dosage: 1.25 MG, BID
     Route: 048
  2. LASILIX [Suspect]
     Dosage: 40 MG, BID
     Route: 048
  3. ESOMEPRAZOLE [Concomitant]
  4. PREVISCAN [Concomitant]
  5. VASTAREL [Concomitant]
  6. NITRODERM [Concomitant]
  7. CARDENSIEL [Concomitant]
  8. LACTULOSE [Concomitant]

REACTIONS (3)
  - ASTHENIA [None]
  - DEHYDRATION [None]
  - RENAL FAILURE ACUTE [None]
